FAERS Safety Report 5021529-1 (Version None)
Quarter: 2006Q2

REPORT INFORMATION
  Report Type: 
  Country: None (occurrence: None)
  Receive Date: 20060608
  Receipt Date: 20060602
  Transmission Date: 20061013
  Serious: Yes (Other)
  Sender: FDA-Public Use
  Company Number: ES-BOEHRINGER INGELHEIM PHARMACEUTICALS, INC.-2006-DE-02865GD

PATIENT

DRUGS (2)
  1. NEVIRAPINE [Suspect]
     Indication: HIV INFECTION
  2. ANTIRETROVIRAL DRUGS [Suspect]
     Indication: HIV INFECTION

REACTIONS (6)
  - HEPATITIS ACUTE [None]
  - HEPATITIS B [None]
  - HEPATITIS C [None]
  - HEPATOTOXICITY [None]
  - LIPODYSTROPHY ACQUIRED [None]
  - REBOUND EFFECT [None]
